FAERS Safety Report 24404896 (Version 2)
Quarter: 2024Q4

REPORT INFORMATION
  Report Type: Spontaneous
  Country: AT (occurrence: AT)
  Receive Date: 20241007
  Receipt Date: 20241213
  Transmission Date: 20250115
  Serious: No
  Sender: NOVARTIS
  Company Number: AT-002147023-NVSC2024AT194473

PATIENT

DRUGS (1)
  1. KESIMPTA [Suspect]
     Active Substance: OFATUMUMAB
     Indication: Product used for unknown indication
     Dosage: UNK
     Route: 065

REACTIONS (1)
  - Disease recurrence [Unknown]
